FAERS Safety Report 14785227 (Version 1)
Quarter: 2018Q2

REPORT INFORMATION
  Report Type: Report from Study
  Country: US (occurrence: US)
  Receive Date: 20180420
  Receipt Date: 20180420
  Transmission Date: 20180711
  Serious: Yes (Other)
  Sender: FDA-Public Use
  Company Number: US-PFIZER INC-2018150245

PATIENT

DRUGS (6)
  1. TACROLIMUS. [Concomitant]
     Active Substance: TACROLIMUS
     Indication: PROPHYLAXIS AGAINST GRAFT VERSUS HOST DISEASE
     Dosage: UNK, (ON DAYS 1, 3, 6 AND 11 POST-TRANSPLANT)
  2. FLUDARABINE PHOSPHATE. [Suspect]
     Active Substance: FLUDARABINE PHOSPHATE
     Indication: ACUTE MYELOID LEUKAEMIA
     Dosage: 30 MG/M2, DAILY,(DAYS -5, -4, -3, -2)
     Route: 042
  3. GEMTUZUMAB OZOGAMICIN [Suspect]
     Active Substance: GEMTUZUMAB OZOGAMICIN
     Indication: ACUTE MYELOID LEUKAEMIA
     Dosage: 4 MG/M2, UNK
  4. NEUPOGEN [Concomitant]
     Active Substance: FILGRASTIM
     Dosage: 5 UG/KG, DAILY, (FROM DAY +7)
     Route: 058
  5. METHOTREXATE. [Concomitant]
     Active Substance: METHOTREXATE
     Indication: PROPHYLAXIS AGAINST GRAFT VERSUS HOST DISEASE
     Dosage: 5 MG/M2 , (MINI-DOSE, ON DAYS 1, 3, 6 AND 11 POST-TRANSPLANT)
  6. MELPHALAN. [Suspect]
     Active Substance: MELPHALAN
     Indication: ACUTE MYELOID LEUKAEMIA
     Dosage: 140 MG/M2, (ON DAY -2)
     Route: 042

REACTIONS (2)
  - Gastrointestinal toxicity [Unknown]
  - Nephropathy toxic [Unknown]
